FAERS Safety Report 10633053 (Version 1)
Quarter: 2014Q4

REPORT INFORMATION
  Report Type: Spontaneous
  Country: US (occurrence: US)
  Receive Date: 20141205
  Receipt Date: 20141205
  Transmission Date: 20150529
  Serious: No
  Sender: FDA-Public Use
  Company Number: US-BRISTOL-MYERS SQUIBB COMPANY-21400114

PATIENT
  Age: 87 Year
  Sex: Female

DRUGS (11)
  1. ELIQUIS [Suspect]
     Active Substance: APIXABAN
  2. LASIX [Concomitant]
     Active Substance: FUROSEMIDE
  3. CALTRATE [Concomitant]
     Active Substance: CALCIUM CARBONATE
  4. PRAVASTATIN [Concomitant]
     Active Substance: PRAVASTATIN\PRAVASTATIN SODIUM
  5. KLOR-CON [Concomitant]
     Active Substance: POTASSIUM CHLORIDE
  6. ZOLOFT [Concomitant]
     Active Substance: SERTRALINE HYDROCHLORIDE
  7. LEVOTHYROXINE SODIUM. [Concomitant]
     Active Substance: LEVOTHYROXINE SODIUM
  8. PROTONIX [Concomitant]
     Active Substance: PANTOPRAZOLE SODIUM
  9. CALCIUM [Concomitant]
     Active Substance: CALCIUM
  10. VESICARE [Concomitant]
     Active Substance: SOLIFENACIN SUCCINATE
  11. POTASSIUM [Concomitant]
     Active Substance: POTASSIUM

REACTIONS (3)
  - Diarrhoea [Unknown]
  - Faeces discoloured [Unknown]
  - Constipation [Unknown]
